FAERS Safety Report 6270819-3 (Version None)
Quarter: 2009Q3

REPORT INFORMATION
  Report Type: 
  Country: None (occurrence: None)
  Receive Date: 20090716
  Receipt Date: 20090707
  Transmission Date: 20100115
  Serious: Yes (Other)
  Sender: FDA-Public Use
  Company Number: CA-ABBOTT-09P-028-0500831-00

PATIENT
  Sex: Male
  Weight: 75.818 kg

DRUGS (9)
  1. HUMIRA [Suspect]
     Indication: COLITIS ULCERATIVE
     Route: 058
     Dates: start: 20081230, end: 20090428
  2. HUMIRA [Suspect]
     Dates: start: 20090410
  3. PURINETHOL [Concomitant]
     Indication: DRUG USE FOR UNKNOWN INDICATION
  4. FOSAMAX [Concomitant]
     Indication: DRUG USE FOR UNKNOWN INDICATION
  5. CALCIUM [Concomitant]
     Indication: DRUG USE FOR UNKNOWN INDICATION
  6. ATIVAN [Concomitant]
     Indication: DRUG USE FOR UNKNOWN INDICATION
  7. ACETAMINOPHEN [Concomitant]
     Indication: DRUG USE FOR UNKNOWN INDICATION
     Dosage: AS REQUIRED
  8. APO-TRAZODONE [Concomitant]
     Indication: DRUG USE FOR UNKNOWN INDICATION
     Dosage: DAILY AT BEDTIME
  9. MEZAVANT [Concomitant]
     Indication: DRUG USE FOR UNKNOWN INDICATION

REACTIONS (13)
  - BACK PAIN [None]
  - CHEST PAIN [None]
  - COUGH [None]
  - DEAFNESS [None]
  - DIARRHOEA [None]
  - DIARRHOEA HAEMORRHAGIC [None]
  - EAR HAEMORRHAGE [None]
  - EAR INFECTION VIRAL [None]
  - FAECES HARD [None]
  - FATIGUE [None]
  - HAEMATOCHEZIA [None]
  - NASOPHARYNGITIS [None]
  - OTITIS MEDIA ACUTE [None]
